FAERS Safety Report 7920229-5 (Version None)
Quarter: 2011Q4

REPORT INFORMATION
  Report Type: 
  Country: None (occurrence: None)
  Receive Date: 20111117
  Receipt Date: 20111114
  Transmission Date: 20120403
  Serious: Yes (Other)
  Sender: FDA-Public Use
  Company Number: FR-PFIZER INC-2011252929

PATIENT
  Age: 63 Year
  Sex: Female
  Weight: 62 kg

DRUGS (1)
  1. CRIZOTINIB [Suspect]
     Indication: LUNG ADENOCARCINOMA METASTATIC
     Dosage: 250 MG, 2X/DAY
     Route: 048
     Dates: start: 20110808

REACTIONS (7)
  - NEUTROPENIA [None]
  - HYPERCREATININAEMIA [None]
  - OEDEMA PERIPHERAL [None]
  - PHOTOPSIA [None]
  - ABDOMINAL PAIN [None]
  - CONSTIPATION [None]
  - PALPITATIONS [None]
